FAERS Safety Report 6060150-3 (Version None)
Quarter: 2009Q1

REPORT INFORMATION
  Report Type: 
  Country: None (occurrence: None)
  Receive Date: 20090127
  Receipt Date: 20090113
  Transmission Date: 20090719
  Serious: Yes (Hospitalization)
  Sender: FDA-Public Use
  Company Number: 100#02#2009-00178

PATIENT
  Age: 48 Year
  Sex: Male

DRUGS (10)
  1. SALBUTAMOL (INHALANT) (SALBUTAMOL) [Suspect]
     Indication: DRUG USE FOR UNKNOWN INDICATION
     Route: 055
  2. TRAMADOL HCL [Suspect]
     Indication: NEURALGIA
     Dates: end: 20081101
  3. OMEPRAZOLE [Suspect]
     Indication: HIATUS HERNIA
  4. SERETIDE (FLUTICASONE, SALMETEROL) [Suspect]
     Indication: ASTHMA
     Dosage: 2 PUFFS
     Route: 055
  5. GABAPENTIN [Suspect]
     Indication: NEURALGIA
     Dates: start: 20081101
  6. ACETAMINOPHEN [Suspect]
     Indication: NEURALGIA
     Dosage: 3 GR
  7. MEBEVERINE (MEBEVERINE) [Suspect]
     Indication: DRUG USE FOR UNKNOWN INDICATION
  8. AMITRIPTYLINE HYDROCHLORIDE [Suspect]
     Indication: DRUG USE FOR UNKNOWN INDICATION
  9. FLUOXETINE [Suspect]
     Indication: DRUG USE FOR UNKNOWN INDICATION
     Dates: start: 20081201
  10. CHLORDIAZEPOXIDE [Concomitant]

REACTIONS (13)
  - BRONCHITIS [None]
  - CHRONIC OBSTRUCTIVE PULMONARY DISEASE [None]
  - DYSPNOEA [None]
  - HIATUS HERNIA [None]
  - IRRITABLE BOWEL SYNDROME [None]
  - LOWER RESPIRATORY TRACT INFECTION [None]
  - MOBILITY DECREASED [None]
  - MOVEMENT DISORDER [None]
  - NERVE COMPRESSION [None]
  - PAIN [None]
  - PHARYNGITIS [None]
  - PROSTATE INFECTION [None]
  - UMBILICAL HERNIA REPAIR [None]
